FAERS Safety Report 22207676 (Version 10)
Quarter: 2023Q2

REPORT INFORMATION
  Report Type: Spontaneous
  Country: US (occurrence: US)
  Receive Date: 20230413
  Receipt Date: 20230629
  Transmission Date: 20230722
  Serious: No
  Sender: FDA-Public Use
  Company Number: US-PFIZER INC-202300144470

PATIENT
  Age: 14 Year
  Sex: Male
  Weight: 54.422 kg

DRUGS (1)
  1. GENOTROPIN [Suspect]
     Active Substance: SOMATROPIN
     Indication: Growth hormone deficiency
     Dosage: 3 MG (INJECT 3MG UNDER THE SKIN 6 DAYS PER WEEK/3MG 6 TIMES A WEEK)
     Route: 058
     Dates: start: 20230402

REACTIONS (9)
  - Device difficult to use [Unknown]
  - Poor quality device used [Unknown]
  - Crying [Unknown]
  - Injection site pain [Unknown]
  - Lack of injection site rotation [Unknown]
  - Wrong technique in product usage process [Unknown]
  - Liquid product physical issue [Unknown]
  - Device leakage [Unknown]
  - Drug dose omission by device [Unknown]
